FAERS Safety Report 5872365-5 (Version None)
Quarter: 2008Q3

REPORT INFORMATION
  Report Type: 
  Country: None (occurrence: None)
  Receive Date: 20080902
  Receipt Date: 20060127
  Transmission Date: 20090109
  Serious: Yes (Other)
  Sender: FDA-Public Use
  Company Number: 2008AL009348

PATIENT
  Age: 88 Year
  Sex: Female

DRUGS (6)
  1. FLUOXETINE [Suspect]
     Indication: DEPRESSION
     Dates: start: 20040101
  2. ACETAMINOPHEN AND TRAMADOL HCL [Concomitant]
  3. DIGOXIN [Concomitant]
  4. BIFONAZOLE [Concomitant]
  5. TRIMETHOPRIM [Concomitant]
  6. BENDROFLUAZIDE [Concomitant]

REACTIONS (3)
  - DRUG INTERACTION [None]
  - HYPERHIDROSIS [None]
  - SEROTONIN SYNDROME [None]
